FAERS Safety Report 9021677 (Version 1)
Quarter: 2013Q1

REPORT INFORMATION
  Report Type: Spontaneous
  Country: US (occurrence: US)
  Receive Date: 20130119
  Receipt Date: 20130119
  Transmission Date: 20140127
  Serious: No
  Sender: FDA-Public Use
  Company Number: US-ALLERGAN-1202754US

PATIENT
  Age: 32 Year
  Sex: Female

DRUGS (2)
  1. BOTOX COSMETIC [Suspect]
     Indication: SKIN WRINKLING
     Dosage: 18 UNITS IN GLABELLA AND 10UNITS IN FRONTALIS, SINGLE
  2. JUVEDERM [Suspect]
     Indication: SKIN WRINKLING
     Dosage: UNK

REACTIONS (2)
  - Injection site discharge [Unknown]
  - Injection site inflammation [Recovering/Resolving]
